FAERS Safety Report 5316982-X (Version None)
Quarter: 2007Q2

REPORT INFORMATION
  Report Type: 
  Country: None (occurrence: None)
  Receive Date: 20070504
  Receipt Date: 20070425
  Transmission Date: 20071010
  Serious: Yes (Death, Other)
  Sender: FDA-Public Use
  Company Number: US-PFIZER INC-2007034316

PATIENT
  Sex: Female

DRUGS (1)
  1. BEXTRA [Suspect]
     Route: 048
     Dates: start: 20030101, end: 20050401

REACTIONS (3)
  - CARDIOVASCULAR DISORDER [None]
  - CEREBROVASCULAR ACCIDENT [None]
  - INJURY [None]
